FAERS Safety Report 9067458 (Version 1)
Quarter: 2013Q1

REPORT INFORMATION
  Report Type: Spontaneous
  Country: TR (occurrence: TR)
  Receive Date: 20130202
  Receipt Date: 20130202
  Transmission Date: 20140127
  Serious: Yes (Other)
  Sender: FDA-Public Use
  Company Number: TR-B.I. PHARMACEUTICALS,INC./RIDGEFIELD-2013-BI-02696GD

PATIENT
  Age: 56 Year
  Sex: Female

DRUGS (3)
  1. NEVIRAPINE [Suspect]
     Indication: HIV TEST POSITIVE
     Dates: start: 200505
  2. LAMIVUDINE [Suspect]
     Indication: HIV TEST POSITIVE
     Dates: start: 200505
  3. ZIDOVUDINE [Suspect]
     Indication: HIV TEST POSITIVE
     Dates: start: 200505

REACTIONS (3)
  - Medullary thyroid cancer [Recovered/Resolved]
  - Thyroid cancer metastatic [Recovered/Resolved]
  - Lymphadenopathy [Recovered/Resolved]
